FAERS Safety Report 16838152 (Version 1)
Quarter: 2019Q3

REPORT INFORMATION
  Report Type: Spontaneous
  Country: LV (occurrence: LV)
  Receive Date: 20190923
  Receipt Date: 20190923
  Transmission Date: 20191005
  Serious: Yes (Death)
  Sender: FDA-Public Use
  Company Number: LV-ENDO PHARMACEUTICALS INC-2019-108035

PATIENT

DRUGS (2)
  1. COLY-MYCIN M [Suspect]
     Active Substance: COLISTIMETHATE SODIUM
     Dosage: 3 MILLION UNIT, TID, STANDARD DOSE
     Route: 042
  2. COLY-MYCIN M [Suspect]
     Active Substance: COLISTIMETHATE SODIUM
     Indication: ACINETOBACTER INFECTION
     Dosage: 9 MILLION UNIT, DAILY, LOADING DOSE
     Route: 042

REACTIONS (1)
  - Nephropathy toxic [Fatal]
